FAERS Safety Report 11871244 (Version 1)
Quarter: 2015Q4

REPORT INFORMATION
  Report Type: Report from Study
  Country: CN (occurrence: CN)
  Receive Date: 20151228
  Receipt Date: 20151228
  Transmission Date: 20160305
  Serious: Yes (Other)
  Sender: FDA-Public Use
  Company Number: CN-BRISTOL-MYERS SQUIBB COMPANY-BMS-2015-089421

PATIENT
  Age: 35 Year
  Sex: Female

DRUGS (1)
  1. CETUXIMAB [Suspect]
     Active Substance: CETUXIMAB
     Indication: COLON CANCER
     Dosage: 250 MG/M2, Q2WK
     Route: 041
     Dates: start: 20150427

REACTIONS (1)
  - Performance status decreased [Recovering/Resolving]

NARRATIVE: CASE EVENT DATE: 20151211
